FAERS Safety Report 7658103-4 (Version None)
Quarter: 2011Q3

REPORT INFORMATION
  Report Type: 
  Country: None (occurrence: None)
  Receive Date: 20110802
  Receipt Date: 20110720
  Transmission Date: 20111222
  Serious: Yes (Hospitalization)
  Sender: FDA-Public Use
  Company Number: CA-1187187

PATIENT
  Age: 46 Year
  Sex: Female

DRUGS (4)
  1. WELLBUTRIN [Concomitant]
  2. CONCERTA [Concomitant]
  3. CYMBALTA [Concomitant]
  4. CIPRODEX [Suspect]
     Dosage: (AURICULAR (OTIC))
     Route: 001

REACTIONS (6)
  - HYPOACUSIS [None]
  - SUNBURN [None]
  - DELIRIUM [None]
  - SUICIDAL BEHAVIOUR [None]
  - AMNESIA [None]
  - ERYTHEMA [None]
